FAERS Safety Report 7229334-2 (Version None)
Quarter: 2011Q1

REPORT INFORMATION
  Report Type: 
  Country: None (occurrence: None)
  Receive Date: 20110117
  Receipt Date: 20110106
  Transmission Date: 20110831
  Serious: Yes (Other)
  Sender: FDA-Public Use
  Company Number: US-RB-018581-11

PATIENT
  Age: 59 Year
  Sex: Male

DRUGS (6)
  1. CALCIUM CHANNEL BLOCKER [Concomitant]
  2. MUCINEX DM [Suspect]
     Indication: COUGH
     Dosage: PATIENT IS TAKING THE PRODUCT EVERY 12 HOURS
     Route: 048
  3. ZOLOFT [Concomitant]
  4. LOPRESSOR [Concomitant]
  5. MORPHINE [Concomitant]
  6. MS CONTIN [Concomitant]

REACTIONS (1)
  - HALLUCINATION [None]
